FAERS Safety Report 8516716-1 (Version None)
Quarter: 2012Q3

REPORT INFORMATION
  Report Type: 
  Country: None (occurrence: None)
  Receive Date: 20120718
  Receipt Date: 20120712
  Transmission Date: 20120928
  Serious: Yes (Hospitalization)
  Sender: FDA-Public Use
  Company Number: US-BAYER-2012-070674

PATIENT
  Age: 38 Year
  Sex: Female

DRUGS (5)
  1. FLONASE [Concomitant]
     Dosage: 1 SPRAY BID
  2. YAZ [Suspect]
  3. AZITHROMYCIN [Concomitant]
     Dosage: 500 MG, UNK
     Route: 048
  4. WELLBUTRIN [Concomitant]
     Dosage: 150 MG, BID
     Route: 048
  5. ESTRADIOL [Concomitant]

REACTIONS (1)
  - PULMONARY EMBOLISM [None]
